FAERS Safety Report 5015507-6 (Version None)
Quarter: 2006Q2

REPORT INFORMATION
  Report Type: 
  Country: None (occurrence: None)
  Receive Date: 20060601
  Receipt Date: 20060524
  Transmission Date: 20061013
  Serious: Yes (Hospitalization)
  Sender: FDA-Public Use
  Company Number: FR-GILEAD-2006-0009631

PATIENT
  Age: 48 Year
  Sex: Female
  Weight: 55 kg

DRUGS (3)
  1. TRUVADA [Suspect]
     Route: 048
     Dates: end: 20060421
  2. RETROVIR [Suspect]
     Route: 048
     Dates: end: 20060421
  3. LEXOMIL ROCHE [Concomitant]

REACTIONS (6)
  - BLOOD ALCOHOL INCREASED [None]
  - DIARRHOEA [None]
  - LACTIC ACIDOSIS [None]
  - MALAISE [None]
  - SHOCK [None]
  - VOMITING [None]
